FAERS Safety Report 21548555 (Version 1)
Quarter: 2022Q4

REPORT INFORMATION
  Report Type: Spontaneous
  Country: IT (occurrence: IT)
  Receive Date: 20221103
  Receipt Date: 20221103
  Transmission Date: 20230113
  Serious: Yes (Hospitalization, Other)
  Sender: FDA-Public Use
  Company Number: None

PATIENT
  Age: 73 Year
  Sex: Male

DRUGS (1)
  1. ENOXAPARIN SODIUM [Suspect]
     Active Substance: ENOXAPARIN SODIUM
     Indication: Atrial fibrillation
     Dosage: CLEXANE 6000 X 2/DAY 6000 IU; QOD
     Route: 058

REACTIONS (2)
  - Anaemia [Recovering/Resolving]
  - Chest wall haematoma [Recovering/Resolving]

NARRATIVE: CASE EVENT DATE: 20220526
